FAERS Safety Report 9529998 (Version 2)
Quarter: 2013Q3

REPORT INFORMATION
  Report Type: Spontaneous
  Country: DK (occurrence: CH)
  Receive Date: 20130917
  Receipt Date: 20130917
  Transmission Date: 20140515
  Serious: Yes (Hospitalization)
  Sender: FDA-Public Use
  Company Number: CH-FRI-1000042460

PATIENT
  Sex: Female

DRUGS (4)
  1. ESCITALOPRAM [Suspect]
     Indication: DEPRESSIVE SYMPTOM
     Dosage: 10 MG
     Dates: end: 20121210
  2. ESCITALOPRAM [Suspect]
     Dosage: 10 MG
  3. METHADONE [Suspect]
     Indication: EX-DRUG ABUSER
     Dosage: 26 MG
  4. ALPRAZOLAM [Suspect]

REACTIONS (3)
  - Pregnancy [Recovered/Resolved]
  - Caesarean section [Recovered/Resolved]
  - Haemorrhage in pregnancy [Recovered/Resolved]
